FAERS Safety Report 23652667 (Version 1)
Quarter: 2024Q1

REPORT INFORMATION
  Report Type: Spontaneous
  Country: US (occurrence: None)
  Receive Date: 20240319
  Receipt Date: 20240319
  Transmission Date: 20240410
  Serious: Yes (Hospitalization)
  Sender: FDA-Public Use
  Company Number: None

PATIENT
  Age: 60 Year
  Sex: Male
  Weight: 61.2 kg

DRUGS (3)
  1. CISPLATIN [Suspect]
     Active Substance: CISPLATIN
     Dates: end: 20240201
  2. VANCOMYCIN [Concomitant]
     Active Substance: VANCOMYCIN
  3. ZOSYN [Concomitant]
     Active Substance: PIPERACILLIN SODIUM\TAZOBACTAM SODIUM

REACTIONS (17)
  - Fall [None]
  - Dizziness [None]
  - Head injury [None]
  - Asthenia [None]
  - Pneumonia [None]
  - Pulmonary embolism [None]
  - Pancytopenia [None]
  - Neutropenic sepsis [None]
  - Septic shock [None]
  - Deep vein thrombosis [None]
  - Haemoglobin decreased [None]
  - Acute respiratory failure [None]
  - Thrombocytopenia [None]
  - Cardiac failure congestive [None]
  - Immune thrombocytopenia [None]
  - Cardiac disorder [None]
  - Faeces discoloured [None]

NARRATIVE: CASE EVENT DATE: 20240212
